FAERS Safety Report 19455932 (Version 1)
Quarter: 2021Q2

REPORT INFORMATION
  Report Type: Spontaneous
  Country: JP (occurrence: JP)
  Receive Date: 20210624
  Receipt Date: 20210624
  Transmission Date: 20210717
  Serious: Yes (Hospitalization)
  Sender: FDA-Public Use
  Company Number: JP-GILEAD-2021-0536836

PATIENT
  Age: 81 Year
  Sex: Male
  Weight: 51.5 kg

DRUGS (10)
  1. OMEPRAZOLE. [Concomitant]
     Active Substance: OMEPRAZOLE
     Dosage: 20 MG, QD
     Route: 041
     Dates: start: 20210522, end: 20210531
  2. DEXAMETHASONE. [Concomitant]
     Active Substance: DEXAMETHASONE
     Dosage: 1.65 MG, QD
     Route: 041
     Dates: start: 20210530, end: 20210531
  3. MINOCYCLINE HYDROCHLORIDE. [Concomitant]
     Active Substance: MINOCYCLINE HYDROCHLORIDE
     Dosage: 100 MG, BID, Q12H
     Route: 041
     Dates: start: 20210521, end: 20210522
  4. DEXAMETHASONE. [Concomitant]
     Active Substance: DEXAMETHASONE
     Indication: COVID-19
     Dosage: 6.6 MG, QD
     Route: 041
     Dates: start: 20210524, end: 20210527
  5. DEXAMETHASONE. [Concomitant]
     Active Substance: DEXAMETHASONE
     Dosage: 3.3 MG, QD
     Route: 041
     Dates: start: 20210528, end: 20210529
  6. MEROPENEM [MEROPENEM TRIHYDRATE] [Concomitant]
     Active Substance: MEROPENEM
     Dosage: 1.0 G, Q8H
     Route: 041
     Dates: start: 20210521, end: 20210522
  7. DOPASTON [Concomitant]
     Active Substance: LEVODOPA
     Dosage: 25 MG, QD
     Route: 041
     Dates: start: 20210522, end: 20210531
  8. VEKLURY [Suspect]
     Active Substance: REMDESIVIR
     Dosage: 100 MG, QD
     Route: 041
     Dates: start: 20210522, end: 20210525
  9. VEKLURY [Suspect]
     Active Substance: REMDESIVIR
     Indication: COVID-19
     Dosage: 200 MG, QD
     Route: 041
     Dates: start: 20210521, end: 20210521
  10. METHYLPREDNISOLONE. [Concomitant]
     Active Substance: METHYLPREDNISOLONE
     Dosage: 1000 MG, QD
     Route: 041
     Dates: start: 20210521, end: 20210523

REACTIONS (1)
  - Bradycardia [Recovered/Resolved]

NARRATIVE: CASE EVENT DATE: 20210524
